FAERS Safety Report 6917779-7 (Version None)
Quarter: 2010Q3

REPORT INFORMATION
  Report Type: 
  Country: None (occurrence: None)
  Receive Date: 20100810
  Receipt Date: 20100729
  Transmission Date: 20110219
  Serious: Yes (Hospitalization, Other)
  Sender: FDA-Public Use
  Company Number: US-PFIZER INC-2010045841

PATIENT
  Sex: Male

DRUGS (13)
  1. CHANTIX [Suspect]
     Indication: SMOKING CESSATION THERAPY
     Dosage: STARTER AND CONTINUOUS PACK
     Dates: start: 20080212, end: 20080101
  2. ZOFRAN [Concomitant]
     Indication: NAUSEA
     Dosage: UNK
     Dates: start: 20070101
  3. TRAZODONE [Concomitant]
     Indication: DEPRESSION
     Dosage: UNK
     Dates: start: 20060101
  4. LAMICTAL [Concomitant]
     Indication: SCHIZOPHRENIA
     Dosage: UNK
     Dates: start: 20070101, end: 20100101
  5. LAMICTAL [Concomitant]
     Indication: PERSONALITY DISORDER
  6. LAMICTAL [Concomitant]
     Indication: DEPRESSION
  7. LAMICTAL [Concomitant]
     Indication: CONVULSION
  8. LISINOPRIL [Concomitant]
     Indication: HYPERTENSION
     Dosage: UNK
     Dates: start: 20060101
  9. ABILIFY [Concomitant]
     Indication: SCHIZOPHRENIA
     Dosage: UNK
     Dates: start: 20060101, end: 20090101
  10. ABILIFY [Concomitant]
     Indication: PERSONALITY DISORDER
  11. ABILIFY [Concomitant]
     Indication: DEPRESSION
  12. ACETYLSALICYLIC ACID [Concomitant]
     Indication: CORONARY ARTERY DISEASE
     Dosage: UNK
     Dates: start: 20060101
  13. NITROGLYCERIN [Concomitant]
     Indication: CHEST PAIN
     Dosage: UNK
     Dates: start: 20070101, end: 20090101

REACTIONS (3)
  - INTENTIONAL OVERDOSE [None]
  - MAJOR DEPRESSION [None]
  - SUICIDE ATTEMPT [None]
